FAERS Safety Report 10178063 (Version 3)
Quarter: 2014Q2

REPORT INFORMATION
  Report Type: Spontaneous
  Country: JP (occurrence: JP)
  Receive Date: 20140518
  Receipt Date: 20140623
  Transmission Date: 20141212
  Serious: Yes (Death, Other)
  Sender: FDA-Public Use
  Company Number: PHHY2014JP051203

PATIENT
  Age: 59 Year
  Sex: Female

DRUGS (1)
  1. SANDIMMUN [Suspect]
     Indication: RENAL TRANSPLANT
     Dosage: 100 MG,DAILY IN TWO DIVIDED DOSES
     Route: 048

REACTIONS (2)
  - Breast cancer [Fatal]
  - Oral administration complication [Unknown]
